FAERS Safety Report 5331603-8 (Version None)
Quarter: 2007Q2

REPORT INFORMATION
  Report Type: 
  Country: None (occurrence: None)
  Receive Date: 20070522
  Receipt Date: 20070513
  Transmission Date: 20071010
  Serious: Yes (Other)
  Sender: FDA-Public Use
  Company Number: US-PFIZER INC-2007038633

PATIENT
  Sex: Male
  Weight: 59.09 kg

DRUGS (3)
  1. CHANTIX [Suspect]
     Indication: SMOKING CESSATION THERAPY
     Dates: start: 20070412, end: 20070509
  2. ZOLOFT [Concomitant]
  3. ARICEPT [Concomitant]

REACTIONS (1)
  - DELUSION [None]
